FAERS Safety Report 13472518 (Version 1)
Quarter: 2017Q2

REPORT INFORMATION
  Report Type: Spontaneous
  Country: US (occurrence: US)
  Receive Date: 20170423
  Receipt Date: 20170423
  Transmission Date: 20170830
  Serious: Yes (Life-Threatening, Hospitalization, Disabling)
  Sender: FDA-Public Use
  Company Number: None

PATIENT
  Age: 55 Year
  Sex: Female
  Weight: 57.6 kg

DRUGS (11)
  1. HYDROCODONE 10/325 [Suspect]
     Active Substance: ACETAMINOPHEN\HYDROCODONE BITARTRATE
     Indication: MULTIPLE SCLEROSIS
     Dosage: ?          QUANTITY:90 TABLET(S); EVERY 6 HOURS ORAL?
     Route: 048
     Dates: start: 20170419, end: 20170422
  2. HYDROCODONE 10/325 [Suspect]
     Active Substance: ACETAMINOPHEN\HYDROCODONE BITARTRATE
     Indication: BACK PAIN
     Dosage: ?          QUANTITY:90 TABLET(S); EVERY 6 HOURS ORAL?
     Route: 048
     Dates: start: 20170419, end: 20170422
  3. HYDROCODONE [Concomitant]
     Active Substance: HYDROCODONE
  4. HYDROCODONE 10/325 [Suspect]
     Active Substance: ACETAMINOPHEN\HYDROCODONE BITARTRATE
     Indication: SPINAL OPERATION
     Dosage: ?          QUANTITY:90 TABLET(S); EVERY 6 HOURS ORAL?
     Route: 048
     Dates: start: 20170419, end: 20170422
  5. SYMBICORT [Concomitant]
     Active Substance: BUDESONIDE\FORMOTEROL FUMARATE DIHYDRATE
  6. VITAMIN D [Concomitant]
     Active Substance: CHOLECALCIFEROL
  7. ALIVE OVER 50 YEARS GUMMY VITAMIN B9 [Concomitant]
  8. HYDROCODONE 10/325 [Suspect]
     Active Substance: ACETAMINOPHEN\HYDROCODONE BITARTRATE
     Indication: SYSTEMIC LUPUS ERYTHEMATOSUS
     Dosage: ?          QUANTITY:90 TABLET(S); EVERY 6 HOURS ORAL?
     Route: 048
     Dates: start: 20170419, end: 20170422
  9. HYDROCODONE 10/325 [Suspect]
     Active Substance: ACETAMINOPHEN\HYDROCODONE BITARTRATE
     Indication: ARTHROPATHY
     Dosage: ?          QUANTITY:90 TABLET(S); EVERY 6 HOURS ORAL?
     Route: 048
     Dates: start: 20170419, end: 20170422
  10. DIAZPAM [Concomitant]
  11. ALBUTEROL INHALOR [Concomitant]

REACTIONS (6)
  - Diarrhoea [None]
  - Product substitution issue [None]
  - Viral upper respiratory tract infection [None]
  - Vomiting [None]
  - Product odour abnormal [None]
  - Malaise [None]

NARRATIVE: CASE EVENT DATE: 20170419
